FAERS Safety Report 6516166-3 (Version None)
Quarter: 2009Q4

REPORT INFORMATION
  Report Type: 
  Country: None (occurrence: None)
  Receive Date: 20091223
  Receipt Date: 20090403
  Transmission Date: 20100525
  Serious: No
  Sender: FDA-Public Use
  Company Number: US-ABBOTT-09P-163-0566658-00

PATIENT
  Sex: Male
  Weight: 16.344 kg

DRUGS (1)
  1. BIAXIN [Suspect]
     Indication: PNEUMONIA
     Dosage: 250MG/5ML
     Route: 048
     Dates: start: 20090331, end: 20090331

REACTIONS (1)
  - THROAT IRRITATION [None]
